FAERS Safety Report 8808347 (Version 1)
Quarter: 2012Q4

REPORT INFORMATION
  Report Type: 
  Country: US (occurrence: US)
  Receive Date: 20120926
  Receipt Date: 20120926
  Transmission Date: 20130627
  Serious: Yes (Other)
  Sender: FDA-Public Use
  Company Number: US-RANBAXY-2012US-60385

PATIENT
  Age: 55 Year
  Sex: Male

DRUGS (3)
  1. SERTRALINE [Suspect]
     Indication: POST-TRAUMATIC STRESS DISORDER
     Dosage: 100 mg
     Route: 065
  2. BUPROPION [Interacting]
     Indication: POST-TRAUMATIC STRESS DISORDER
     Dosage: 100 mg, daily
     Route: 065
  3. BUPROPION [Interacting]
     Indication: MAJOR DEPRESSION

REACTIONS (2)
  - Drug interaction [Recovered/Resolved]
  - Hypersexuality [Recovered/Resolved]
